FAERS Safety Report 10267145 (Version 1)
Quarter: 2014Q2

REPORT INFORMATION
  Report Type: Spontaneous
  Country: US (occurrence: US)
  Receive Date: 20140630
  Receipt Date: 20140630
  Transmission Date: 20141212
  Serious: Yes (Other)
  Sender: FDA-Public Use
  Company Number: US-SUN PHARMACEUTICAL INDUSTRIES LTD-2014SUN01404

PATIENT
  Sex: 0

DRUGS (1)
  1. ALPRAZOLAM TABS C-IV 2MG [Suspect]
     Indication: PRODUCT USED FOR UNKNOWN INDICATION
     Dosage: 2 MG, TID
     Route: 065
     Dates: start: 20140609

REACTIONS (4)
  - Generalised anxiety disorder [Unknown]
  - Panic attack [Unknown]
  - Insomnia [Unknown]
  - Drug ineffective [Unknown]
